FAERS Safety Report 8080134-3 (Version None)
Quarter: 2012Q1

REPORT INFORMATION
  Report Type: 
  Country: None (occurrence: None)
  Receive Date: 20120129
  Receipt Date: 20111027
  Transmission Date: 20120608
  Serious: No
  Sender: FDA-Public Use
  Company Number: US-ABBOTT-11P-163-0869718-00

PATIENT
  Sex: Female
  Weight: 43.13 kg

DRUGS (5)
  1. HUMIRA [Suspect]
     Indication: CROHN'S DISEASE
     Dates: start: 20110901, end: 20110901
  2. TRAMADOL HCL [Concomitant]
     Indication: ARTHRALGIA
  3. HUMIRA [Suspect]
  4. HUMIRA [Suspect]
  5. ENTOCORT EC [Concomitant]
     Indication: CROHN'S DISEASE

REACTIONS (1)
  - ACCIDENTAL OVERDOSE [None]
